FAERS Safety Report 11536140 (Version 1)
Quarter: 2015Q3

REPORT INFORMATION
  Report Type: Spontaneous
  Country: US (occurrence: US)
  Receive Date: 20150922
  Receipt Date: 20150922
  Transmission Date: 20151125
  Serious: Yes (Hospitalization, Other)
  Sender: FDA-Public Use
  Company Number: PHEH2015US018046

PATIENT
  Age: 53 Year
  Sex: Female
  Weight: 46.4 kg

DRUGS (1)
  1. JADENU [Suspect]
     Active Substance: DEFERASIROX
     Indication: DOUBLE HETEROZYGOUS SICKLING DISORDERS
     Dosage: 14 MG/KG, QD
     Route: 048
     Dates: start: 20150712, end: 20150912

REACTIONS (8)
  - Lethargy [Unknown]
  - Bone marrow failure [Recovering/Resolving]
  - Weight decreased [Unknown]
  - Dizziness [Unknown]
  - Asthenia [Unknown]
  - Decreased appetite [Unknown]
  - Anaemia [Unknown]
  - Blood urea increased [Unknown]

NARRATIVE: CASE EVENT DATE: 20150911
